FAERS Safety Report 4355567-9 (Version None)
Quarter: 2004Q2

REPORT INFORMATION
  Report Type: 
  Country: None (occurrence: None)
  Receive Date: 20040505
  Receipt Date: 20040426
  Transmission Date: 20050107
  Serious: Yes (Disabling)
  Sender: FDA-Public Use
  Company Number: 04P-167-0258935-00

PATIENT
  Age: 46 Year
  Sex: Female
  Weight: 89 kg

DRUGS (1)
  1. MERIDIA [Suspect]
     Indication: WEIGHT CONTROL
     Dosage: 10MG, 1 IN 1 D, PER ORAL
     Route: 048
     Dates: start: 20040301, end: 20040328

REACTIONS (3)
  - AGGRESSION [None]
  - DEPRESSION [None]
  - PARANOIA [None]
